FAERS Safety Report 10071902 (Version 2)
Quarter: 2014Q2

REPORT INFORMATION
  Report Type: Spontaneous
  Country: US (occurrence: US)
  Receive Date: 20140411
  Receipt Date: 20140411
  Transmission Date: 20141212
  Serious: Yes (Other)
  Sender: FDA-Public Use
  Company Number: US-JNJFOC-20140303719

PATIENT
  Age: 35 Year
  Sex: Female
  Weight: 56.25 kg

DRUGS (1)
  1. REMICADE [Suspect]
     Indication: COLITIS ULCERATIVE
     Route: 042
     Dates: start: 20140103

REACTIONS (4)
  - Pharyngitis [Not Recovered/Not Resolved]
  - Muscle spasms [Unknown]
  - Mucosal inflammation [Unknown]
  - Dyspnoea [Unknown]
